FAERS Safety Report 24557520 (Version 3)
Quarter: 2025Q4

REPORT INFORMATION
  Report Type: Report from Study
  Country: US (occurrence: US)
  Receive Date: 20241028
  Receipt Date: 20251008
  Transmission Date: 20260117
  Serious: Yes (Other)
  Sender: UCB
  Company Number: US-UCBSA-2024055974

PATIENT
  Age: 12 Year
  Sex: Male
  Weight: 30.8 kg

DRUGS (2)
  1. FINTEPLA [Suspect]
     Active Substance: FENFLURAMINE
     Indication: Product used for unknown indication
     Dosage: 0.6 MILLIGRAM PER KILOGRAM PER DAY; 18.92 MILLIGRAMS/ DAY
     Dates: start: 20240516
  2. FINTEPLA [Suspect]
     Active Substance: FENFLURAMINE
     Dosage: 21.56 MILLIGRAM PER DAY

REACTIONS (1)
  - Tricuspid valve incompetence [Not Recovered/Not Resolved]

NARRATIVE: CASE EVENT DATE: 20241014
